FAERS Safety Report 9790749 (Version 1)
Quarter: 2013Q4

REPORT INFORMATION
  Report Type: Spontaneous
  Country: US (occurrence: US)
  Receive Date: 20131231
  Receipt Date: 20131231
  Transmission Date: 20140711
  Serious: Yes (Death)
  Sender: FDA-Public Use
  Company Number: US-PFIZER INC-2013373872

PATIENT
  Age: 25 Year
  Sex: Male
  Weight: 59.86 kg

DRUGS (2)
  1. ALPRAZOLAM [Suspect]
     Dosage: UNK
  2. METHADONE [Suspect]
     Dosage: UNK

REACTIONS (2)
  - Toxicity to various agents [Fatal]
  - Sudden cardiac death [Fatal]
